FAERS Safety Report 7594087-5 (Version None)
Quarter: 2011Q3

REPORT INFORMATION
  Report Type: 
  Country: None (occurrence: None)
  Receive Date: 20110706
  Receipt Date: 20110701
  Transmission Date: 20111222
  Serious: Yes (Hospitalization, Other)
  Sender: FDA-Public Use
  Company Number: ES-PFIZER INC-2011148439

PATIENT
  Age: 37 Year
  Sex: Female

DRUGS (7)
  1. DOXYCHEL HYCLATE [Suspect]
     Indication: INFECTION
     Dosage: 100 MG, 1X/DAY
     Route: 042
     Dates: start: 20101203, end: 20101209
  2. FLAGYL [Concomitant]
     Indication: INFECTION
     Dosage: 1500 MG DAILY
     Route: 042
     Dates: start: 20101128, end: 20101202
  3. MYCOSTATIN [Concomitant]
     Indication: INFECTION
     Dosage: 3000 MILLIONIU DAILY
     Route: 048
     Dates: start: 20101205, end: 20101211
  4. VANCOMYCIN [Concomitant]
     Indication: STAPHYLOCOCCAL INFECTION
     Dosage: 2 G DAILY
     Route: 042
     Dates: start: 20101129, end: 20101209
  5. PANTOPRAZOLE [Concomitant]
     Indication: PROPHYLAXIS AGAINST GASTROINTESTINAL ULCER
     Dosage: 40 MG, 1X/DAY
     Route: 048
     Dates: start: 20101124, end: 20101222
  6. PIPERACILLIN AND TAZOBACTAM [Concomitant]
     Indication: STAPHYLOCOCCAL INFECTION
     Dosage: 16 G DAILY
     Route: 042
     Dates: start: 20101201, end: 20101206
  7. LEVOFLOXACIN [Concomitant]
     Dosage: 1000 MG, 1X/DAY
     Route: 042
     Dates: start: 20101127, end: 20101202

REACTIONS (7)
  - BACK PAIN [None]
  - NAUSEA [None]
  - OEDEMA [None]
  - DIARRHOEA [None]
  - CARDIAC FAILURE [None]
  - HYPOTENSION [None]
  - HYPOKALAEMIA [None]
